FAERS Safety Report 9256760 (Version 3)
Quarter: 2013Q4

REPORT INFORMATION
  Report Type: Spontaneous
  Country: US (occurrence: US)
  Receive Date: 20130426
  Receipt Date: 20131018
  Transmission Date: 20140711
  Serious: Yes (Hospitalization, Other)
  Sender: FDA-Public Use
  Company Number: US-ASTRAZENECA-2013SE27731

PATIENT
  Age: 61 Year
  Sex: Female
  Weight: 72.6 kg

DRUGS (58)
  1. NEXIUM [Suspect]
     Indication: CHEST PAIN
     Route: 048
     Dates: start: 2006, end: 20100523
  2. NEXIUM [Suspect]
     Indication: ULCER
     Route: 048
     Dates: start: 2006, end: 20100523
  3. NEXIUM [Suspect]
     Indication: GASTROOESOPHAGEAL REFLUX DISEASE
     Route: 048
     Dates: start: 2006, end: 20100523
  4. NEXIUM [Suspect]
     Indication: CHEST PAIN
     Route: 048
     Dates: start: 20060227
  5. NEXIUM [Suspect]
     Indication: ULCER
     Route: 048
     Dates: start: 20060227
  6. NEXIUM [Suspect]
     Indication: GASTROOESOPHAGEAL REFLUX DISEASE
     Route: 048
     Dates: start: 20060227
  7. NEXIUM [Suspect]
     Indication: CHEST PAIN
     Route: 048
     Dates: start: 20060403, end: 20100617
  8. NEXIUM [Suspect]
     Indication: ULCER
     Route: 048
     Dates: start: 20060403, end: 20100617
  9. NEXIUM [Suspect]
     Indication: GASTROOESOPHAGEAL REFLUX DISEASE
     Route: 048
     Dates: start: 20060403, end: 20100617
  10. PREVACID [Suspect]
     Indication: ULCER
     Route: 065
     Dates: start: 2003, end: 2006
  11. PREVACID [Suspect]
     Indication: GASTROOESOPHAGEAL REFLUX DISEASE
     Route: 065
     Dates: start: 2003, end: 2006
  12. PLAVIX [Suspect]
     Route: 065
     Dates: start: 2007
  13. PEPCID [Concomitant]
     Route: 048
     Dates: start: 20100523
  14. TUMS [Concomitant]
     Indication: DYSPEPSIA
     Dosage: GENERIC
     Dates: start: 1969, end: 1996
  15. ALKA SELTZER/ASPIRIN [Concomitant]
     Indication: MIGRAINE
     Dates: start: 1985
  16. POTASSIUM [Concomitant]
     Indication: MUSCLE SPASMS
  17. ALPRAZOLAM [Concomitant]
     Indication: RAPID EYE MOVEMENTS SLEEP ABNORMAL
  18. ALPRAZOLAM [Concomitant]
     Indication: RAPID EYE MOVEMENTS SLEEP ABNORMAL
     Dates: start: 20060217
  19. AMLODIPINE BESYLATE [Concomitant]
     Indication: BLOOD PRESSURE ABNORMAL
  20. DIPHENOXYLATE ATROPINE [Concomitant]
     Indication: DIARRHOEA
     Dosage: 2.5- 0.025 MG
  21. HYDROCHLOROTHIAZIDE [Concomitant]
     Indication: BLOOD PRESSURE ABNORMAL
  22. HYDROXYUREA [Concomitant]
     Indication: PLATELET COUNT DECREASED
     Dosage: 500-100 MG ALTERNATE DAYS
  23. LACTULOSE [Concomitant]
     Indication: LIVER DISORDER
     Dosage: 10 GM/15 ML TWO TABLE SPOON DAILY
  24. LEXAPRO [Concomitant]
     Indication: DEPRESSION
  25. LEXAPRO [Concomitant]
     Indication: POST-TRAUMATIC STRESS DISORDER
  26. METOPROLOL SUCCINATE [Concomitant]
     Indication: BLOOD PRESSURE ABNORMAL
  27. METOPROLOL SUCCINATE [Concomitant]
     Indication: POST-TRAUMATIC STRESS DISORDER
  28. PROMETHAZINE HCL [Concomitant]
     Indication: NAUSEA
  29. CYCLOBENZAPRINE [Concomitant]
     Indication: MUSCLE RELAXANT THERAPY
  30. ALTACE [Concomitant]
  31. PREMARIN [Concomitant]
     Indication: HORMONE REPLACEMENT THERAPY
  32. PROPOXYPHEN [Concomitant]
     Indication: PAIN
  33. VIOXX [Concomitant]
     Indication: PAIN
  34. BEXTRA [Concomitant]
     Indication: PAIN
  35. PREDNISONE [Concomitant]
     Indication: PAIN
  36. PREDNISONE [Concomitant]
     Indication: SWELLING
  37. CORTISONE [Concomitant]
     Indication: BURSITIS
  38. CORTISONE [Concomitant]
     Indication: PAIN IN EXTREMITY
  39. TRAMADOL HCL [Concomitant]
     Indication: PAIN
  40. METRONIDAZOLE [Concomitant]
     Indication: INFECTION
  41. TRAZODONE [Concomitant]
     Indication: PAIN
  42. ZETIA [Concomitant]
     Indication: MULTIPLE ALLERGIES
     Dates: start: 2006, end: 2008
  43. ZETIA [Concomitant]
     Indication: BLOOD CHOLESTEROL DECREASED
     Dates: start: 2006, end: 2008
  44. ZETIA [Concomitant]
     Indication: MULTIPLE ALLERGIES
     Dosage: 5 MG, 1/2 A DAY
  45. ZETIA [Concomitant]
     Indication: BLOOD CHOLESTEROL DECREASED
     Dosage: 5 MG, 1/2 A DAY
  46. PROTONIX [Concomitant]
     Dates: start: 2005
  47. CYMBALTA [Concomitant]
  48. OXYCODONE [Concomitant]
     Indication: PAIN
     Dates: end: 201205
  49. FENTANYL [Concomitant]
     Dosage: 50-75 MCG/HR PATCH
     Dates: end: 201205
  50. CENTRUM [Concomitant]
     Dosage: DAILY
  51. FLUOCINOLONE ACETONIDE [Concomitant]
     Indication: EAR PAIN
     Dosage: .01 PERCENT OIL
  52. FISH OIL [Concomitant]
  53. EXALGO [Concomitant]
     Indication: PAIN
  54. CATAPRES-TTS [Concomitant]
     Indication: PAIN
  55. HYOSCYAMINE [Concomitant]
  56. LIDODERM [Concomitant]
     Indication: PAIN
  57. HYZAAR [Concomitant]
     Dosage: 100-25 MG
  58. LYRICA [Concomitant]

REACTIONS (41)
  - Wrist fracture [Unknown]
  - Convulsion [Unknown]
  - Transient ischaemic attack [Unknown]
  - Cervix carcinoma [Recovered/Resolved]
  - Cerebrovascular accident [Unknown]
  - Gastrointestinal haemorrhage [Unknown]
  - Joint injury [Unknown]
  - Limb injury [Unknown]
  - Injury [Unknown]
  - Polycythaemia vera [Unknown]
  - Upper limb fracture [Unknown]
  - Trigger finger [Unknown]
  - Colitis ischaemic [Unknown]
  - Radius fracture [Unknown]
  - Osteoporosis [Unknown]
  - Bone disorder [Unknown]
  - Multiple fractures [Unknown]
  - Road traffic accident [Unknown]
  - Dehydration [Unknown]
  - Calcium deficiency [Unknown]
  - Vitamin D deficiency [Unknown]
  - Cataract [Unknown]
  - Osteoarthritis [Unknown]
  - Back injury [Unknown]
  - Glaucoma [Unknown]
  - Peripheral arterial occlusive disease [Unknown]
  - Hypothyroidism [Unknown]
  - Fall [Unknown]
  - Fibula fracture [Unknown]
  - Tibia fracture [Unknown]
  - Post-traumatic stress disorder [Unknown]
  - Intervertebral disc disorder [Unknown]
  - Ankle fracture [Unknown]
  - Foot fracture [Unknown]
  - Aortic valve disease [Unknown]
  - Hand fracture [Unknown]
  - Depression [Unknown]
  - Abdominal pain upper [Unknown]
  - Vomiting [Unknown]
  - Headache [Unknown]
  - Irritable bowel syndrome [Unknown]
